FAERS Safety Report 17546596 (Version 1)
Quarter: 2020Q1

REPORT INFORMATION
  Report Type: Report from Study
  Country: US (occurrence: US)
  Receive Date: 20200316
  Receipt Date: 20200316
  Transmission Date: 20200409
  Serious: Yes (Death, Hospitalization, Disabling, Other)
  Sender: FDA-Public Use
  Company Number: NVSC2020US071678

PATIENT
  Age: 69 Year
  Sex: Male
  Weight: 82.6 kg

DRUGS (1)
  1. KYMRIAH [Suspect]
     Active Substance: TISAGENLECLEUCEL
     Indication: DIFFUSE LARGE B-CELL LYMPHOMA
     Dosage: UNK, ONCE/SINGLE
     Route: 042
     Dates: start: 20200204

REACTIONS (8)
  - Ascites [Unknown]
  - Neurotoxicity [Unknown]
  - Hilar lymphadenopathy [Unknown]
  - Failure to thrive [Unknown]
  - Diffuse large B-cell lymphoma [Fatal]
  - Abdominal pain [Fatal]
  - Retroperitoneal lymphadenopathy [Unknown]
  - Malignant neoplasm progression [Fatal]

NARRATIVE: CASE EVENT DATE: 20200223
